FAERS Safety Report 4810095-9 (Version None)
Quarter: 2005Q4

REPORT INFORMATION
  Report Type: 
  Country: None (occurrence: None)
  Receive Date: 20051026
  Receipt Date: 20051020
  Transmission Date: 20060501
  Serious: Yes (Hospitalization)
  Sender: FDA-Public Use
  Company Number: 2005PK01938

PATIENT
  Age: 61 Year
  Sex: Male

DRUGS (15)
  1. BELOC ZOK MITE [Suspect]
     Route: 048
  2. EDRONAX [Interacting]
     Route: 048
     Dates: start: 20030326, end: 20030409
  3. STANGYL [Interacting]
     Route: 048
     Dates: end: 20030408
  4. STANGYL [Interacting]
     Route: 048
     Dates: start: 20030423, end: 20030425
  5. STANGYL [Interacting]
     Route: 048
     Dates: start: 20030507, end: 20030510
  6. NORTRILEN [Interacting]
     Route: 048
     Dates: start: 20030424, end: 20030425
  7. PANTOZOL [Interacting]
     Route: 048
     Dates: start: 20030326, end: 20030404
  8. PANTOZOL [Interacting]
     Route: 048
     Dates: start: 20030405, end: 20030428
  9. PANTOZOL [Interacting]
     Route: 048
     Dates: start: 20030429
  10. XANEF [Concomitant]
     Route: 048
  11. ASPIRIN [Concomitant]
     Route: 048
     Dates: end: 20030409
  12. ACTRAPID [Concomitant]
     Route: 058
  13. PROTHAPHANE [Concomitant]
     Route: 058
  14. CLOPIDOGREL BISULFATE [Concomitant]
     Dates: start: 20030409
  15. XIMOVAN [Concomitant]
     Route: 048
     Dates: start: 20030404

REACTIONS (5)
  - ALANINE AMINOTRANSFERASE INCREASED [None]
  - ASPARTATE AMINOTRANSFERASE INCREASED [None]
  - DRUG INTERACTION [None]
  - GAMMA-GLUTAMYLTRANSFERASE INCREASED [None]
  - HEPATIC ENZYME INCREASED [None]
